FAERS Safety Report 15351117 (Version 2)
Quarter: 2018Q4

REPORT INFORMATION
  Report Type: Spontaneous
  Country: US (occurrence: US)
  Receive Date: 20180905
  Receipt Date: 20181004
  Transmission Date: 20190204
  Serious: No
  Sender: FDA-Public Use
  Company Number: US-TEVA-2018-US-950596

PATIENT
  Sex: Female

DRUGS (23)
  1. OMEPRAZOLE. [Concomitant]
     Active Substance: OMEPRAZOLE
     Dosage: 80 MILLIGRAM DAILY;
     Route: 065
     Dates: start: 2012
  2. SALAGEN [Concomitant]
     Active Substance: PILOCARPINE HYDROCHLORIDE
     Dosage: 22.5 MILLIGRAM DAILY;
     Dates: start: 2013
  3. ZYRTEC [Concomitant]
     Active Substance: CETIRIZINE HYDROCHLORIDE
     Dosage: 10 MILLIGRAM DAILY;
     Dates: start: 2014
  4. ANASTROZOLE. [Suspect]
     Active Substance: ANASTROZOLE
     Indication: BREAST CANCER
     Route: 065
     Dates: start: 20171129
  5. AZELASTINE. [Concomitant]
     Active Substance: AZELASTINE HYDROCHLORIDE
     Dosage: 1 SPRAY IN EACH NOSTRIL2 TIMES A DAY
     Dates: start: 2018
  6. LEVOTHRYROXINE [Concomitant]
     Dosage: 75 MICROGRAM DAILY;
     Route: 065
     Dates: start: 2006
  7. PATADAY [Concomitant]
     Active Substance: OLOPATADINE HYDROCHLORIDE
     Indication: HYPERSENSITIVITY
     Dosage: I DROP IN EACH EYE AS NEEDED FOR ALLERGIES
     Dates: start: 2014
  8. CALCIUM [Concomitant]
     Active Substance: CALCIUM
  9. FLEXERIL [Concomitant]
     Active Substance: CYCLOBENZAPRINE HYDROCHLORIDE
     Dosage: 10 MILLIGRAM DAILY;
     Dates: start: 2014
  10. TOPAMAX [Concomitant]
     Active Substance: TOPIRAMATE
     Dosage: 400 MILLIGRAM DAILY;
     Dates: start: 20160801
  11. EPIPEN [Concomitant]
     Active Substance: EPINEPHRINE
  12. VITAMIN D3 [Concomitant]
     Active Substance: CHOLECALCIFEROL
  13. CYMBALTA [Concomitant]
     Active Substance: DULOXETINE HYDROCHLORIDE
     Dosage: 60 MILLIGRAM DAILY;
     Dates: start: 2014
  14. PLAQUENIL [Concomitant]
     Active Substance: HYDROXYCHLOROQUINE SULFATE
     Dosage: 400 MILLIGRAM DAILY; STARTED MORE THAN 10 YEARS AGO
  15. SINGULAIR [Concomitant]
     Active Substance: MONTELUKAST SODIUM
     Dosage: 10 MILLIGRAM DAILY;
     Dates: start: 20170901
  16. FLONASE [Concomitant]
     Active Substance: FLUTICASONE PROPIONATE
     Dosage: 1 SPRAY IN EACH NOSTRI12 TIMES A DAY
     Dates: start: 2015
  17. ESTRACE [Concomitant]
     Active Substance: ESTRADIOL
  18. VITAMIN B12 [Concomitant]
     Active Substance: CYANOCOBALAMIN
  19. MYRBETRIQ [Concomitant]
     Active Substance: MIRABEGRON
     Dosage: 25 MILLIGRAM DAILY;
     Dates: start: 2018
  20. LUMIGAN [Concomitant]
     Active Substance: BIMATOPROST
     Dosage: I DROP IN EACH EYE EVERY NIGHT
     Dates: start: 200707
  21. RESTASIS [Concomitant]
     Active Substance: CYCLOSPORINE
     Dosage: 1 DROP IN EACH EYE TWICE A DAY
     Dates: start: 200707
  22. FLOVENT [Concomitant]
     Active Substance: FLUTICASONE PROPIONATE
     Dosage: 1 PUFF TWICE A DAY AS NEEDED
     Dates: start: 20170901
  23. VENTOLIN [Concomitant]
     Active Substance: ALBUTEROL SULFATE
     Dosage: 2 PUFFS EVERY FOUR HOURS AS NEEDED

REACTIONS (12)
  - Fatigue [Unknown]
  - Headache [Unknown]
  - Asthenia [Unknown]
  - Staring [Unknown]
  - Balance disorder [Unknown]
  - Muscle twitching [Unknown]
  - Tremor [Unknown]
  - Paraesthesia [Unknown]
  - Nausea [Unknown]
  - Dizziness [Unknown]
  - Alopecia [Unknown]
  - Memory impairment [Unknown]
